FAERS Safety Report 7724252-5 (Version None)
Quarter: 2011Q3

REPORT INFORMATION
  Report Type: 
  Country: None (occurrence: None)
  Receive Date: 20110829
  Receipt Date: 20110811
  Transmission Date: 20111222
  Serious: Yes (Hospitalization)
  Sender: FDA-Public Use
  Company Number: 2011MA011686

PATIENT
  Age: 52 Year
  Sex: Female

DRUGS (3)
  1. EPIRUBICIN HYDROCHLORIDE [Suspect]
     Indication: BREAST CANCER STAGE III
     Dosage: 6 CYCLES, QW
  2. FLUOROURACIL [Suspect]
     Indication: BREAST CANCER STAGE III
     Dosage: 6 CYCLES, QW
  3. CYCLOPHOSPHAMIDE [Suspect]
     Indication: BREAST CANCER STAGE III
     Dosage: 6 CYCLES, QW

REACTIONS (5)
  - CARDIOMYOPATHY [None]
  - MITRAL VALVE INCOMPETENCE [None]
  - CARDIAC FAILURE [None]
  - SYNCOPE [None]
  - APHASIA [None]
